FAERS Safety Report 6576613-8 (Version None)
Quarter: 2010Q1

REPORT INFORMATION
  Report Type: 
  Country: None (occurrence: None)
  Receive Date: 20100210
  Receipt Date: 20100201
  Transmission Date: 20100710
  Serious: Yes (Hospitalization)
  Sender: FDA-Public Use
  Company Number: FR-ASTRAZENECA-2010SE05316

PATIENT
  Age: 27755 Day
  Sex: Female

DRUGS (13)
  1. NEXIUM [Suspect]
     Route: 048
     Dates: start: 20090526, end: 20090527
  2. PERFALGAN [Suspect]
     Dosage: 10 MG/ML
     Route: 042
     Dates: start: 20090525, end: 20090528
  3. ACUPAN [Suspect]
     Route: 030
     Dates: start: 20090525, end: 20090527
  4. SPASFON [Suspect]
     Route: 048
     Dates: start: 20090526, end: 20090529
  5. AMPHOTRECINE B [Concomitant]
     Route: 048
     Dates: start: 20090504, end: 20090511
  6. ROCEPHIN [Concomitant]
     Route: 042
     Dates: start: 20090503, end: 20090509
  7. IMOVANE [Concomitant]
     Route: 048
  8. NOLVADEX [Concomitant]
     Route: 048
  9. HEMIGOXINE NATIVELLE [Concomitant]
     Route: 048
     Dates: start: 20090428, end: 20090615
  10. LOVENOX [Concomitant]
     Dosage: 500 MG/5 ML
     Route: 058
  11. OGASTORO [Concomitant]
     Dates: start: 20090428, end: 20090615
  12. CORDARONE [Concomitant]
     Dosage: 200 MG (1 DF, 5 WEEKS)
     Route: 048
     Dates: start: 20090428, end: 20090615
  13. LASILIX [Concomitant]
     Route: 048
     Dates: start: 20090428, end: 20090615

REACTIONS (1)
  - TOXIC SKIN ERUPTION [None]
